FAERS Safety Report 6174435-3 (Version None)
Quarter: 2009Q2

REPORT INFORMATION
  Report Type: 
  Country: None (occurrence: None)
  Receive Date: 20090430
  Receipt Date: 20080605
  Transmission Date: 20091009
  Serious: No
  Sender: FDA-Public Use
  Company Number: US-ASTRAZENECA-2008UW11375

PATIENT
  Age: 43 Year
  Sex: Female
  Weight: 82.6 kg

DRUGS (1)
  1. NEXIUM [Suspect]
     Indication: GASTROOESOPHAGEAL REFLUX DISEASE
     Route: 048
     Dates: start: 20080604

REACTIONS (4)
  - HEART RATE INCREASED [None]
  - HYPERHIDROSIS [None]
  - NERVOUSNESS [None]
  - PERIPHERAL COLDNESS [None]
